FAERS Safety Report 16299816 (Version 2)
Quarter: 2021Q1

REPORT INFORMATION
  Report Type: Spontaneous
  Country: US (occurrence: US)
  Receive Date: 20190510
  Receipt Date: 20210302
  Transmission Date: 20210419
  Serious: Yes (Hospitalization, Other)
  Sender: FDA-Public Use
  Company Number: US-ASTRAZENECA-2019SE63809

PATIENT
  Age: 14220 Day
  Sex: Male

DRUGS (42)
  1. SIMVASTATIN. [Concomitant]
     Active Substance: SIMVASTATIN
  2. SENSIPAR [Concomitant]
     Active Substance: CINACALCET HYDROCHLORIDE
  3. VIGAMOX [Concomitant]
     Active Substance: MOXIFLOXACIN HYDROCHLORIDE
  4. BRIMONIDINE [Concomitant]
     Active Substance: BRIMONIDINE TARTRATE
  5. MINOXIDIL. [Concomitant]
     Active Substance: MINOXIDIL
  6. CALCIUM ACETATE. [Concomitant]
     Active Substance: CALCIUM ACETATE
  7. REGLAN [Concomitant]
     Active Substance: METOCLOPRAMIDE HYDROCHLORIDE
  8. DILAUDID [Concomitant]
     Active Substance: HYDROMORPHONE HYDROCHLORIDE
  9. NEXIUM [Suspect]
     Active Substance: ESOMEPRAZOLE MAGNESIUM
     Indication: GASTROOESOPHAGEAL REFLUX DISEASE
     Route: 048
     Dates: start: 200901, end: 201012
  10. TORSEMIDE. [Concomitant]
     Active Substance: TORSEMIDE
  11. HYDROMORPHON [Concomitant]
     Active Substance: HYDROMORPHONE
  12. CLONIDINE. [Concomitant]
     Active Substance: CLONIDINE
  13. DIOVAN [Concomitant]
     Active Substance: VALSARTAN
  14. NEXIUM [Suspect]
     Active Substance: ESOMEPRAZOLE MAGNESIUM
     Indication: GASTROOESOPHAGEAL REFLUX DISEASE
     Route: 048
     Dates: end: 2015
  15. PRILOSEC [Suspect]
     Active Substance: OMEPRAZOLE MAGNESIUM
     Indication: GASTROOESOPHAGEAL REFLUX DISEASE
     Route: 048
     Dates: start: 200901, end: 201012
  16. PRILOSEC [Suspect]
     Active Substance: OMEPRAZOLE MAGNESIUM
     Indication: GASTROOESOPHAGEAL REFLUX DISEASE
     Dosage: GENERIC20.0MG UNKNOWN
     Route: 065
  17. LISINOPRIL. [Concomitant]
     Active Substance: LISINOPRIL
  18. RENVELA [Concomitant]
     Active Substance: SEVELAMER CARBONATE
  19. FOSRENOL [Concomitant]
     Active Substance: LANTHANUM CARBONATE
  20. NEVANAC [Concomitant]
     Active Substance: NEPAFENAC
  21. TRAMADOL. [Concomitant]
     Active Substance: TRAMADOL
  22. PREVACID [Suspect]
     Active Substance: LANSOPRAZOLE
     Route: 065
  23. OXYCODONE [Concomitant]
     Active Substance: OXYCODONE
  24. HYDRALAZINE [Concomitant]
     Active Substance: HYDRALAZINE HYDROCHLORIDE
  25. LANTUS [Concomitant]
     Active Substance: INSULIN GLARGINE
  26. SALINE [Concomitant]
     Active Substance: SODIUM CHLORIDE
  27. VENOFER [Concomitant]
     Active Substance: IRON SUCROSE
  28. NEXIUM 24HR [Suspect]
     Active Substance: ESOMEPRAZOLE MAGNESIUM
     Indication: GASTROOESOPHAGEAL REFLUX DISEASE
     Route: 048
     Dates: start: 200901, end: 201012
  29. NEXIUM 24HR [Suspect]
     Active Substance: ESOMEPRAZOLE MAGNESIUM
     Indication: GASTROOESOPHAGEAL REFLUX DISEASE
     Route: 048
     Dates: start: 2014, end: 2015
  30. AMLODIPINE [Concomitant]
     Active Substance: AMLODIPINE BESYLATE
  31. COREG [Concomitant]
     Active Substance: CARVEDILOL
  32. HECTOROL [Concomitant]
     Active Substance: DOXERCALCIFEROL
  33. ENGERIX?B [Concomitant]
     Active Substance: HEPATITIS B VIRUS SUBTYPE ADW2 HBSAG SURFACE PROTEIN ANTIGEN
  34. CARAFATE [Concomitant]
     Active Substance: SUCRALFATE
  35. NOVOLOG [Concomitant]
     Active Substance: INSULIN ASPART
  36. PREDNISOLONE. [Concomitant]
     Active Substance: PREDNISOLONE
  37. EPOGEN [Concomitant]
     Active Substance: ERYTHROPOIETIN
  38. PERCOCET [Concomitant]
     Active Substance: ACETAMINOPHEN\OXYCODONE HYDROCHLORIDE
  39. SENOKOT [Concomitant]
     Active Substance: SENNOSIDES
  40. CLONAZEPAM. [Concomitant]
     Active Substance: CLONAZEPAM
  41. TUMS [Concomitant]
     Active Substance: CALCIUM CARBONATE
     Dates: start: 2013
  42. LABETALOL [Concomitant]
     Active Substance: LABETALOL\LABETALOL HYDROCHLORIDE

REACTIONS (7)
  - Renal failure [Unknown]
  - Acute kidney injury [Unknown]
  - End stage renal disease [Unknown]
  - Chronic kidney disease-mineral and bone disorder [Unknown]
  - Nephrogenic anaemia [Unknown]
  - Chronic kidney disease [Unknown]
  - Hyperparathyroidism secondary [Unknown]

NARRATIVE: CASE EVENT DATE: 20100914
